FAERS Safety Report 25816897 (Version 1)
Quarter: 2025Q3

REPORT INFORMATION
  Report Type: Report from Study
  Country: PK (occurrence: PK)
  Receive Date: 20250918
  Receipt Date: 20250918
  Transmission Date: 20251020
  Serious: Yes (Death, Hospitalization)
  Sender: ROCHE
  Company Number: PK-ROCHE-10000389655

PATIENT
  Age: 63 Year
  Sex: Female

DRUGS (2)
  1. AVASTIN [Suspect]
     Active Substance: BEVACIZUMAB
     Indication: Cervix carcinoma
     Route: 042
     Dates: start: 20250806
  2. AVASTIN [Suspect]
     Active Substance: BEVACIZUMAB
     Route: 042
     Dates: start: 20250806

REACTIONS (6)
  - Death [Fatal]
  - Vomiting [Unknown]
  - Pyrexia [Unknown]
  - Bacterial infection [Unknown]
  - Cytopenia [Unknown]
  - Hypotension [Unknown]

NARRATIVE: CASE EVENT DATE: 20250821
